FAERS Safety Report 23452421 (Version 1)
Quarter: 2024Q1

REPORT INFORMATION
  Report Type: Spontaneous
  Country: GB (occurrence: GB)
  Receive Date: 20240129
  Receipt Date: 20240129
  Transmission Date: 20240410
  Serious: Yes (Disabling)
  Sender: FDA-Public Use
  Company Number: None

PATIENT
  Age: 64 Year
  Sex: Female
  Weight: 70 kg

DRUGS (8)
  1. NAPROXEN [Suspect]
     Active Substance: NAPROXEN
     Indication: Adverse drug reaction
     Route: 065
     Dates: start: 20240123
  2. LORATADINE [Concomitant]
     Active Substance: LORATADINE
     Indication: Adverse drug reaction
     Dosage: TAKE ONE DAILY
     Dates: start: 20220715
  3. VALPROATE SODIUM [Concomitant]
     Active Substance: VALPROATE SODIUM
     Indication: Adverse drug reaction
     Dosage: 1 TABLET BD
     Dates: start: 20220715
  4. PHENYTOIN SODIUM [Concomitant]
     Active Substance: PHENYTOIN SODIUM
     Indication: Adverse drug reaction
     Dosage: TIME INTERVAL: 0.33333333 DAYS: ONE THREE TIMES A DAY
     Dates: start: 20220715
  5. ATORVASTATIN [Concomitant]
     Active Substance: ATORVASTATIN
     Indication: Adverse drug reaction
     Dosage: TAKE ONE DAILY
     Dates: start: 20220715
  6. SERTRALINE [Concomitant]
     Active Substance: SERTRALINE HYDROCHLORIDE
     Indication: Adverse drug reaction
     Dosage: ONE A DAY
     Dates: start: 20220715
  7. NITROFURANTOIN [Concomitant]
     Active Substance: NITROFURANTOIN
     Indication: Adverse drug reaction
     Dosage: TAKE ONE TWICE DAILY
     Dates: start: 20231219, end: 20231226
  8. TEGRETOL [Concomitant]
     Active Substance: CARBAMAZEPINE
     Indication: Adverse drug reaction
     Dosage: 2 IN THE MORNING ; 3 IN THE EVENING
     Dates: start: 20220715

REACTIONS (1)
  - Dermatitis allergic [Recovered/Resolved]

NARRATIVE: CASE EVENT DATE: 20240123
